FAERS Safety Report 10155027 (Version 1)
Quarter: 2014Q2

REPORT INFORMATION
  Report Type: Spontaneous
  Country: US (occurrence: None)
  Receive Date: 20140505
  Receipt Date: 20140505
  Transmission Date: 20141212
  Serious: No
  Sender: FDA-Public Use
  Company Number: None

PATIENT
  Sex: Female
  Weight: 11.34 kg

DRUGS (1)
  1. SINGULAIR [Suspect]

REACTIONS (5)
  - Personality change [None]
  - Aggression [None]
  - Aggression [None]
  - Urinary incontinence [None]
  - Sleep terror [None]
